FAERS Safety Report 17287042 (Version 1)
Quarter: 2020Q1

REPORT INFORMATION
  Report Type: Spontaneous
  Country: US (occurrence: US)
  Receive Date: 20200120
  Receipt Date: 20200120
  Transmission Date: 20200409
  Serious: Yes (Hospitalization)
  Sender: FDA-Public Use
  Company Number: US-TEVA-2020-US-1171119

PATIENT
  Age: 79 Year
  Sex: Male

DRUGS (4)
  1. MIRTAZAPINE. [Suspect]
     Active Substance: MIRTAZAPINE
     Indication: APPETITE DISORDER
     Route: 065
  2. MIRTAZAPINE. [Suspect]
     Active Substance: MIRTAZAPINE
     Indication: PAIN
  3. MORPHINE [Concomitant]
     Active Substance: MORPHINE
     Indication: APPETITE DISORDER
     Route: 065
  4. NIVOLUMAB/IPILIMUMAB [Concomitant]
     Indication: MALIGNANT MELANOMA
     Route: 065

REACTIONS (1)
  - Psychotic disorder [Recovered/Resolved]
